FAERS Safety Report 10264137 (Version 1)
Quarter: 2014Q2

REPORT INFORMATION
  Report Type: Spontaneous
  Country: FR (occurrence: FR)
  Receive Date: 20140627
  Receipt Date: 20140627
  Transmission Date: 20141212
  Serious: Yes (Hospitalization, Other)
  Sender: FDA-Public Use
  Company Number: FR-BRISTOL-MYERS SQUIBB COMPANY-21061254

PATIENT
  Age: 51 Year
  Sex: Female

DRUGS (7)
  1. COUMADINE [Suspect]
     Dosage: REINTRODUCED ON 26AUG2013
     Route: 048
     Dates: end: 20130816
  2. KARDEGIC [Suspect]
     Dosage: 1DF: 75 UNITS NOS
  3. EFFEXOR [Concomitant]
     Dosage: 1DF: 75 UNITS NOS
  4. KEPPRA [Concomitant]
     Dosage: 1DF: 1DF: 500 UNITS NOS
  5. LASILIX [Concomitant]
     Dosage: 1DF: 40 UNITS NOS
  6. CETIRIZINE [Concomitant]
     Dosage: 1DF: 10 UNITS NOS
  7. XANAX [Concomitant]

REACTIONS (7)
  - Haemorrhage [Recovering/Resolving]
  - Haematuria [Recovering/Resolving]
  - Subcutaneous haematoma [Recovering/Resolving]
  - Anaemia [Recovering/Resolving]
  - International normalised ratio increased [Recovering/Resolving]
  - Gastroenteritis [Unknown]
  - Pyelonephritis [Not Recovered/Not Resolved]
